FAERS Safety Report 9931646 (Version 1)
Quarter: 2014Q1

REPORT INFORMATION
  Report Type: Spontaneous
  Country: US (occurrence: None)
  Receive Date: 20140227
  Receipt Date: 20140227
  Transmission Date: 20141002
  Serious: Yes (Other)
  Sender: FDA-Public Use
  Company Number: None

PATIENT
  Age: 79 Year
  Sex: Female

DRUGS (2)
  1. FORTEO 20 MCG LILLY [Suspect]
     Indication: SENILE OSTEOPOROSIS
     Route: 058
     Dates: start: 20140124
  2. ZANTAC [Concomitant]

REACTIONS (1)
  - Convulsion [None]
